FAERS Safety Report 8186791-5 (Version None)
Quarter: 2012Q1

REPORT INFORMATION
  Report Type: 
  Country: None (occurrence: None)
  Receive Date: 20120306
  Receipt Date: 20120306
  Transmission Date: 20120608
  Serious: Yes (Other)
  Sender: FDA-Public Use
  Company Number: None

PATIENT
  Age: 29 Year
  Sex: Female
  Weight: 74.842 kg

DRUGS (2)
  1. NORGESTIMATE AND ETHINYL ESTRADIOL [Suspect]
     Indication: HORMONE LEVEL ABNORMAL
     Dosage: 1 PILL PER DAY
     Route: 048
     Dates: start: 20120205, end: 20120303
  2. NORGESTIMATE AND ETHINYL ESTRADIOL [Suspect]
     Indication: CONTRACEPTION
     Dosage: 1 PILL PER DAY
     Route: 048
     Dates: start: 20120205, end: 20120303

REACTIONS (6)
  - ANGER [None]
  - IRRITABILITY [None]
  - FAMILY STRESS [None]
  - MOOD SWINGS [None]
  - PRODUCT QUALITY ISSUE [None]
  - HORMONE LEVEL ABNORMAL [None]
